FAERS Safety Report 18357328 (Version 3)
Quarter: 2021Q1

REPORT INFORMATION
  Report Type: Spontaneous
  Country: US (occurrence: US)
  Receive Date: 20201007
  Receipt Date: 20210204
  Transmission Date: 20210419
  Serious: Yes (Other)
  Sender: FDA-Public Use
  Company Number: US-PFIZER INC-2020385794

PATIENT
  Age: 47 Year
  Sex: Female
  Weight: 61.22 kg

DRUGS (4)
  1. OXYCODONE [Suspect]
     Active Substance: OXYCODONE
     Indication: PAIN
     Dosage: 410 MG, DAILY
     Dates: start: 2010
  2. TYLENOL WITH CODEINE [Suspect]
     Active Substance: ACETAMINOPHEN\CODEINE PHOSPHATE
     Indication: PAIN
     Dosage: 5 MG, 3X/DAY
     Dates: start: 2004
  3. DEMEROL [Suspect]
     Active Substance: MEPERIDINE HYDROCHLORIDE
     Indication: PAIN
     Dosage: UNK, (1?2 YEAR)
     Dates: start: 2004
  4. FENTANYL CITRATE. [Suspect]
     Active Substance: FENTANYL CITRATE
     Dosage: 12.5 MG
     Dates: start: 2010

REACTIONS (1)
  - Dependence [Not Recovered/Not Resolved]

NARRATIVE: CASE EVENT DATE: 2004
